FAERS Safety Report 10050441 (Version 1)
Quarter: 2014Q2

REPORT INFORMATION
  Report Type: Spontaneous
  Country: US (occurrence: US)
  Receive Date: 20140401
  Receipt Date: 20140401
  Transmission Date: 20141212
  Serious: Yes (Death, Other)
  Sender: FDA-Public Use
  Company Number: US-SA-2014SA036953

PATIENT
  Age: 78 Year
  Sex: Female

DRUGS (1)
  1. LANTUS [Suspect]
     Indication: DIABETES MELLITUS
     Dosage: TREATMENT START DATE: 3-4 YEARS AGO?TREATMENT END DATE: ABOUT 6 MONTHS AGO DOSE:45 UNIT(S)
     Route: 065

REACTIONS (3)
  - Diabetes mellitus [Fatal]
  - Renal failure [Unknown]
  - Pancreatic insufficiency [Unknown]
